FAERS Safety Report 24733477 (Version 2)
Quarter: 2025Q3

REPORT INFORMATION
  Report Type: Spontaneous
  Country: CA (occurrence: CA)
  Receive Date: 20241213
  Receipt Date: 20250919
  Transmission Date: 20251021
  Serious: Yes (Death, Hospitalization)
  Sender: DR REDDYS
  Company Number: None

PATIENT
  Age: 86 Year
  Sex: Female
  Weight: 70 kg

DRUGS (18)
  1. LENALIDOMIDE [Suspect]
     Active Substance: LENALIDOMIDE
     Indication: Plasma cell myeloma
     Route: 065
  2. DARATUMUMAB\HYALURONIDASE-FIHJ [Suspect]
     Active Substance: DARATUMUMAB\HYALURONIDASE-FIHJ
     Indication: Plasma cell myeloma
     Route: 058
  3. DARATUMUMAB\HYALURONIDASE-FIHJ [Suspect]
     Active Substance: DARATUMUMAB\HYALURONIDASE-FIHJ
     Route: 058
  4. DEXAMETHASONE [Suspect]
     Active Substance: DEXAMETHASONE
     Indication: Plasma cell myeloma
  5. APIXABAN [Concomitant]
     Active Substance: APIXABAN
     Indication: Atrial fibrillation
  6. CANNABIS SATIVA FLOWERING TOP [Concomitant]
     Active Substance: CANNABIS SATIVA FLOWERING TOP
     Indication: Arthritis
  7. CITALOPRAM [Concomitant]
     Active Substance: CITALOPRAM
     Indication: Anxiety
  8. DAPAGLIFLOZIN [Concomitant]
     Active Substance: DAPAGLIFLOZIN
     Indication: Cardiac failure
  9. COVID-19 VACCINE [Concomitant]
     Indication: Product used for unknown indication
  10. DIGOXIN [Concomitant]
     Active Substance: DIGOXIN
     Indication: Cardiac failure
  11. FEBUXOSTAT [Concomitant]
     Active Substance: FEBUXOSTAT
     Indication: Gout
  12. GLYCERIN [Concomitant]
     Active Substance: GLYCERIN
     Indication: Cellulitis
  13. PANTOPRAZOLE MAGNESIUM [Concomitant]
     Active Substance: PANTOPRAZOLE MAGNESIUM
     Indication: Gastrooesophageal reflux disease
  14. ROSUVASTATIN [Concomitant]
     Active Substance: ROSUVASTATIN
     Indication: Dyslipidaemia
  15. ALBUTEROL [Concomitant]
     Active Substance: ALBUTEROL
     Indication: Chronic obstructive pulmonary disease
  16. SULFAMETHOXAZOLE\TRIMETHOPRIM [Concomitant]
     Active Substance: SULFAMETHOXAZOLE\TRIMETHOPRIM
     Indication: Urinary tract infection
  17. TIOTROPIUM [Concomitant]
     Active Substance: TIOTROPIUM
     Indication: Chronic obstructive pulmonary disease
  18. BISOPROLOL [Concomitant]
     Active Substance: BISOPROLOL
     Indication: Pulmonary hypertension

REACTIONS (7)
  - Cellulitis [Fatal]
  - COVID-19 [Fatal]
  - Dehydration [Fatal]
  - Dyspnoea [Fatal]
  - Memory impairment [Fatal]
  - Oedema peripheral [Fatal]
  - Vomiting [Fatal]
